FAERS Safety Report 24246309 (Version 2)
Quarter: 2025Q3

REPORT INFORMATION
  Report Type: Other
  Country: JP (occurrence: JP)
  Receive Date: 20240825
  Receipt Date: 20250721
  Transmission Date: 20251021
  Serious: Yes (Death, Other)
  Sender: DEXCEL LTD.
  Company Number: JP-DEXPHARM-2024-2901

PATIENT
  Age: 81 Year
  Sex: Male

DRUGS (3)
  1. LANSOPRAZOLE [Interacting]
     Active Substance: LANSOPRAZOLE
  2. CEFTRIAXONE [Interacting]
     Active Substance: CEFTRIAXONE
     Indication: Pneumonia
  3. TRAZODONE [Suspect]
     Active Substance: TRAZODONE HYDROCHLORIDE

REACTIONS (3)
  - Agonal respiration [Fatal]
  - Pulseless electrical activity [Fatal]
  - Drug interaction [Fatal]
